FAERS Safety Report 17458858 (Version 1)
Quarter: 2020Q1

REPORT INFORMATION
  Report Type: Spontaneous
  Country: US (occurrence: US)
  Receive Date: 20200225
  Receipt Date: 20200225
  Transmission Date: 20200409
  Serious: No
  Sender: FDA-Public Use
  Company Number: US-IGSA-SR10008255

PATIENT
  Age: 60 Year
  Sex: Male
  Weight: 75 kg

DRUGS (13)
  1. CELECOXIB. [Concomitant]
     Active Substance: CELECOXIB
  2. SPIRIVA [Concomitant]
     Active Substance: TIOTROPIUM BROMIDE MONOHYDRATE
  3. BENADRYL [Concomitant]
     Active Substance: DIPHENHYDRAMINE HYDROCHLORIDE
     Indication: PREMEDICATION
     Dosage: 25 MG, UNK
     Dates: start: 2019
  4. PROAIR HFA [Concomitant]
     Active Substance: ALBUTEROL SULFATE
  5. TESSALON [Concomitant]
     Active Substance: BENZONATATE
  6. IBUPROFEN. [Concomitant]
     Active Substance: IBUPROFEN
     Indication: PREMEDICATION
     Dosage: 600 MG, UNK
     Dates: start: 2019
  7. PROLASTIN-C LIQUID [Suspect]
     Active Substance: .ALPHA.1-PROTEINASE INHIBITOR HUMAN
     Dosage: 4500 MG, Q.WK.
     Route: 042
     Dates: start: 20190424
  8. BREO ELLIPTA [Concomitant]
     Active Substance: FLUTICASONE FUROATE\VILANTEROL TRIFENATATE
  9. DALIRESP [Concomitant]
     Active Substance: ROFLUMILAST
  10. SINGULAIR [Concomitant]
     Active Substance: MONTELUKAST SODIUM
  11. DUONEB [Concomitant]
     Active Substance: ALBUTEROL SULFATE\IPRATROPIUM BROMIDE
  12. PROLASTIN-C LIQUID [Suspect]
     Active Substance: .ALPHA.1-PROTEINASE INHIBITOR HUMAN
     Indication: ALPHA-1 ANTI-TRYPSIN DEFICIENCY
     Dosage: 4500 MG, Q.WK.
     Route: 042
     Dates: start: 20190417
  13. FLONASE                            /00908302/ [Concomitant]
     Active Substance: MOMETASONE FUROATE

REACTIONS (4)
  - Influenza like illness [Recovering/Resolving]
  - Tremor [Not Recovered/Not Resolved]
  - Paraesthesia [Not Recovered/Not Resolved]
  - Headache [Recovering/Resolving]

NARRATIVE: CASE EVENT DATE: 201904
